FAERS Safety Report 24754167 (Version 2)
Quarter: 2024Q4

REPORT INFORMATION
  Report Type: Spontaneous
  Country: DE (occurrence: DE)
  Receive Date: 20241219
  Receipt Date: 20241226
  Transmission Date: 20250115
  Serious: Yes (Hospitalization, Other)
  Sender: PFIZER
  Company Number: DE-002147023-NVSC2020DE321972

PATIENT
  Sex: Female

DRUGS (19)
  1. METHOTREXATE SODIUM [Suspect]
     Active Substance: METHOTREXATE SODIUM
     Dosage: 10 MG
     Route: 058
     Dates: start: 20190924
  2. METHOTREXATE SODIUM [Suspect]
     Active Substance: METHOTREXATE SODIUM
     Dosage: 7.5 MG
     Route: 058
     Dates: start: 20191230, end: 20200715
  3. SULFASALAZINE [Suspect]
     Active Substance: SULFASALAZINE
     Dosage: 1500 MG
     Route: 065
     Dates: start: 20210415
  4. SULFASALAZINE [Suspect]
     Active Substance: SULFASALAZINE
     Dosage: 2000 MG
     Route: 065
     Dates: start: 20211123, end: 20220510
  5. HYRIMOZ [Suspect]
     Active Substance: ADALIMUMAB-ADAZ
     Dosage: 40 MG
     Route: 065
     Dates: start: 20200604, end: 20200903
  6. IBUPROFEN [Suspect]
     Active Substance: IBUPROFEN
     Dosage: 600 MG
     Route: 065
     Dates: start: 20190315
  7. IBUPROFEN [Suspect]
     Active Substance: IBUPROFEN
     Dosage: 1200 MG
     Route: 065
     Dates: start: 20190315
  8. IBUPROFEN [Suspect]
     Active Substance: IBUPROFEN
     Dosage: 1800 MG
     Route: 065
     Dates: start: 20190315
  9. IBUPROFEN [Suspect]
     Active Substance: IBUPROFEN
     Dosage: 800 MG
     Route: 065
     Dates: start: 20200501
  10. IBUPROFEN [Suspect]
     Active Substance: IBUPROFEN
     Dosage: 800 MG
     Route: 065
     Dates: start: 20210515, end: 20211123
  11. IBUPROFEN [Suspect]
     Active Substance: IBUPROFEN
     Dosage: 800 MG
     Route: 065
     Dates: start: 20231204
  12. CELECOXIB [Suspect]
     Active Substance: CELECOXIB
     Dosage: 200 MG
     Route: 065
     Dates: start: 20200402, end: 20200423
  13. ETORICOXIB [Suspect]
     Active Substance: ETORICOXIB
     Dosage: 90 MG
     Route: 065
     Dates: start: 20211123, end: 20221115
  14. COSENTYX [Suspect]
     Active Substance: SECUKINUMAB
     Indication: Psoriatic arthropathy
     Dosage: 150 MG
     Route: 042
     Dates: start: 20190131, end: 20200106
  15. COSENTYX [Suspect]
     Active Substance: SECUKINUMAB
     Dosage: UNK
     Route: 065
  16. ACEMETACIN [Suspect]
     Active Substance: ACEMETACIN
     Dosage: 180 MG
     Route: 065
     Dates: start: 20180801, end: 20190305
  17. IDACIO [Suspect]
     Active Substance: ADALIMUMAB-AACF
     Dosage: 40 MG
     Route: 065
     Dates: start: 20200917, end: 20221003
  18. TREMFYA [Suspect]
     Active Substance: GUSELKUMAB
     Dosage: 100 MG
     Route: 065
     Dates: start: 20221017, end: 20231111
  19. RINVOQ [Suspect]
     Active Substance: UPADACITINIB
     Dosage: 15 MG
     Route: 065
     Dates: start: 20231219

REACTIONS (2)
  - Reactive gastropathy [Recovered/Resolved]
  - Psoriatic arthropathy [Recovered/Resolved]

NARRATIVE: CASE EVENT DATE: 20200401
